FAERS Safety Report 9879887 (Version 1)
Quarter: 2014Q1

REPORT INFORMATION
  Report Type: Spontaneous
  Country: NL (occurrence: NL)
  Receive Date: 20140206
  Receipt Date: 20140206
  Transmission Date: 20141002
  Serious: Yes (Other)
  Sender: FDA-Public Use
  Company Number: NL-009507513-1401NLD012503

PATIENT
  Age: 75 Year
  Sex: Male

DRUGS (7)
  1. SIMVASTATIN [Suspect]
     Indication: PRODUCT USED FOR UNKNOWN INDICATION
     Dosage: 1 TIMES PER 1 DAYS 40 MG (1 TABLET IN THE EVENING)
     Route: 048
     Dates: end: 201304
  2. PULMICORT [Concomitant]
     Dosage: 2 TIMES PER 1 AS NECESSARY 400 MICROGRAM
     Route: 055
  3. OMEPRAZOLE [Concomitant]
     Dosage: 1 TIMES PER 1 DAYS 20 MG
     Route: 048
  4. ASPIRIN [Concomitant]
     Dosage: 1 TIMES PER 1 DAYS 80 MG
     Route: 048
  5. BISOPROLOL [Concomitant]
     Dosage: 1 TIMES PER 1 DAYS 5 MG
     Route: 048
     Dates: end: 20121031
  6. FORADIL [Concomitant]
     Dosage: 1 TIMES PER 1 DAYS 12 MICROGRAM
  7. TEMAZEPAM [Concomitant]
     Dosage: 1 TIMES PER 1 DAYS 10 MG
     Route: 048
     Dates: end: 20120912

REACTIONS (3)
  - Aphasia [Recovered/Resolved]
  - Depressed mood [Recovered/Resolved]
  - Myalgia [Recovered/Resolved]
